FAERS Safety Report 17365003 (Version 1)
Quarter: 2020Q1

REPORT INFORMATION
  Report Type: Report from Study
  Country: PL (occurrence: PL)
  Receive Date: 20200204
  Receipt Date: 20200204
  Transmission Date: 20200409
  Serious: Yes (Hospitalization, Other)
  Sender: FDA-Public Use
  Company Number: PL-APNAR-000039

PATIENT
  Age: 61 Year
  Sex: Male

DRUGS (3)
  1. METOPROLOL. [Interacting]
     Active Substance: METOPROLOL
     Indication: ACUTE MYOCARDIAL INFARCTION
  2. FLUOXETINE [Suspect]
     Active Substance: FLUOXETINE HYDROCHLORIDE
     Indication: ANTIDEPRESSANT THERAPY
  3. ACETYLSALICYLIC ACID [Concomitant]
     Active Substance: ASPIRIN

REACTIONS (3)
  - Drug interaction [Unknown]
  - Drug level increased [Unknown]
  - Bradycardia [Unknown]
